FAERS Safety Report 17556489 (Version 1)
Quarter: 2020Q1

REPORT INFORMATION
  Report Type: Spontaneous
  Country: FR (occurrence: FR)
  Receive Date: 20200318
  Receipt Date: 20200318
  Transmission Date: 20200409
  Serious: Yes (Hospitalization)
  Sender: FDA-Public Use
  Company Number: FR-MYLANLABS-2020M1027368

PATIENT
  Age: 80 Year
  Sex: Male
  Weight: 103 kg

DRUGS (1)
  1. ITRACONAZOLE MYLAN 100 MG, G?LULE [Suspect]
     Active Substance: ITRACONAZOLE
     Indication: ASPERGILLOMA
     Dosage: 200 MILLIGRAM, QD
     Route: 048
     Dates: start: 20190812, end: 20191105

REACTIONS (1)
  - Oedema peripheral [Unknown]

NARRATIVE: CASE EVENT DATE: 20191022
